FAERS Safety Report 20969377 (Version 1)
Quarter: 2022Q2

REPORT INFORMATION
  Report Type: Spontaneous
  Country: US (occurrence: None)
  Receive Date: 20220616
  Receipt Date: 20220616
  Transmission Date: 20220721
  Serious: Yes (unspecified)
  Sender: FDA-Public Use
  Company Number: None

PATIENT
  Age: 48 Year
  Sex: Female
  Weight: 74.25 kg

DRUGS (7)
  1. PAXLOVID [Suspect]
     Active Substance: NIRMATRELVIR\RITONAVIR
     Indication: COVID-19 treatment
     Dosage: OTHER QUANTITY : 30 TABLET(S);?FREQUENCY : EVERY 12 HOURS;?
     Route: 048
     Dates: start: 20220615, end: 20220616
  2. CLONAZEPAM [Concomitant]
     Active Substance: CLONAZEPAM
  3. OXYBUTYNIN [Concomitant]
     Active Substance: OXYBUTYNIN
  4. MODAFINIL [Concomitant]
     Active Substance: MODAFINIL
  5. DULOXETINE [Concomitant]
     Active Substance: DULOXETINE
  6. TYLENOL [Concomitant]
     Active Substance: ACETAMINOPHEN
  7. VITAMINS [Concomitant]
     Active Substance: VITAMINS

REACTIONS (3)
  - Lip swelling [None]
  - Swelling face [None]
  - Swelling face [None]

NARRATIVE: CASE EVENT DATE: 20220616
